FAERS Safety Report 9507502 (Version 1)
Quarter: 2013Q3

REPORT INFORMATION
  Report Type: Spontaneous
  Country: DE (occurrence: DE)
  Receive Date: 20130909
  Receipt Date: 20130909
  Transmission Date: 20140515
  Serious: Yes (Hospitalization, Other)
  Sender: FDA-Public Use
  Company Number: DE-ELI_LILLY_AND_COMPANY-DE201308008935

PATIENT
  Age: 51 Year
  Sex: Female

DRUGS (5)
  1. ZYPADHERA [Suspect]
     Indication: SCHIZOPHRENIA, PARANOID TYPE
     Dosage: 405 MG, MONTHLY (1/M)
     Route: 030
     Dates: start: 20121101, end: 20130827
  2. AMISULPRID [Concomitant]
     Dosage: 400 MG, UNKNOWN
     Dates: start: 201008
  3. L-THYROXIN [Concomitant]
     Dosage: 75 MG, UNKNOWN
     Dates: start: 201208
  4. LANTUS [Concomitant]
     Dosage: 13 DF, UNK
     Dates: start: 201105
  5. NOVORAPID [Concomitant]
     Dosage: UNK
     Dates: start: 201008

REACTIONS (5)
  - Somnolence [Recovered/Resolved]
  - Oxygen saturation decreased [Recovered/Resolved]
  - Heart rate increased [Recovered/Resolved]
  - Blood pressure increased [Recovered/Resolved]
  - Blood glucose increased [Recovered/Resolved]
